FAERS Safety Report 22370690 (Version 1)
Quarter: 2023Q2

REPORT INFORMATION
  Report Type: Spontaneous
  Country: JP (occurrence: JP)
  Receive Date: 20230526
  Receipt Date: 20230526
  Transmission Date: 20230721
  Serious: Yes (Other)
  Sender: FDA-Public Use
  Company Number: JP-BAXTER-2023BAX020098AA

PATIENT
  Age: 46 Year
  Sex: Female

DRUGS (6)
  1. SUPRANE [Suspect]
     Active Substance: DESFLURANE
     Indication: Maintenance of anaesthesia
     Route: 065
  2. THIAMYLAL SODIUM [Concomitant]
     Active Substance: THIAMYLAL SODIUM
     Indication: Induction of anaesthesia
     Dosage: 150MG
     Route: 065
  3. FENTANYL CITRATE [Concomitant]
     Active Substance: FENTANYL CITRATE
     Indication: Induction of anaesthesia
     Dosage: 0.1 MG
     Route: 065
  4. ROCURONIUM BROMIDE [Concomitant]
     Active Substance: ROCURONIUM BROMIDE
     Indication: Hypotonia
     Dosage: 40 MG, AN ADDITIONAL 10 MG MUSCLE RELAXANT WAS ADMINISTERED EVERY 40 MINUTES
     Route: 065
  5. REMIFENTANIL HYDROCHLORIDE [Concomitant]
     Active Substance: REMIFENTANIL HYDROCHLORIDE
     Indication: Maintenance of anaesthesia
     Route: 065
  6. SUGAMMADEX SODIUM [Concomitant]
     Active Substance: SUGAMMADEX SODIUM
     Indication: Hypotonia
     Route: 065

REACTIONS (8)
  - Pneumonia [Unknown]
  - Sputum increased [Unknown]
  - Respiratory failure [Unknown]
  - Oxygen saturation decreased [Recovering/Resolving]
  - Hyponatraemia [Unknown]
  - Atelectasis [Recovering/Resolving]
  - Somnolence [Unknown]
  - Hypercapnia [Unknown]
